FAERS Safety Report 22520673 (Version 1)
Quarter: 2023Q2

REPORT INFORMATION
  Report Type: Spontaneous
  Country: US (occurrence: None)
  Receive Date: 20230604
  Receipt Date: 20230604
  Transmission Date: 20230722
  Serious: No
  Sender: FDA-Public Use
  Company Number: None

PATIENT
  Age: 65 Year
  Sex: Female
  Weight: 63 kg

DRUGS (12)
  1. IBANDRONATE SODIUM [Suspect]
     Active Substance: IBANDRONATE SODIUM
     Indication: Osteopenia
     Dosage: OTHER QUANTITY : 1 TABLET(S);?OTHER FREQUENCY : ONCE MONTHLY;?
     Route: 048
     Dates: start: 20230601
  2. ESOMEPRAZOLE [Concomitant]
     Active Substance: ESOMEPRAZOLE
  3. COLESTIPOL [Concomitant]
     Active Substance: COLESTIPOL
  4. AMLODIPINE [Concomitant]
     Active Substance: AMLODIPINE BESYLATE
  5. FLUOXETINE [Concomitant]
     Active Substance: FLUOXETINE HYDROCHLORIDE
  6. GEMTESA [Concomitant]
     Active Substance: VIBEGRON
  7. POTASSIUM CHLORIDE [Concomitant]
     Active Substance: POTASSIUM CHLORIDE
  8. CLARITIN [Concomitant]
     Active Substance: LORATADINE
  9. BIOTIN [Concomitant]
     Active Substance: BIOTIN
  10. calcium w/d [Concomitant]
  11. VITAMINS [Concomitant]
     Active Substance: VITAMINS
  12. lutein/zeaxanthin [Concomitant]

REACTIONS (7)
  - Pain [None]
  - Headache [None]
  - Muscle spasms [None]
  - Arthralgia [None]
  - Influenza [None]
  - SARS-CoV-2 test negative [None]
  - Fatigue [None]

NARRATIVE: CASE EVENT DATE: 20230601
